FAERS Safety Report 10361914 (Version 2)
Quarter: 2014Q3

REPORT INFORMATION
  Report Type: Spontaneous
  Country: JP (occurrence: JP)
  Receive Date: 20140805
  Receipt Date: 20140909
  Transmission Date: 20150326
  Serious: Yes (Death)
  Sender: FDA-Public Use
  Company Number: PHHY2013JP159713

PATIENT
  Age: 66 Year
  Sex: Male

DRUGS (21)
  1. ZOMETA [Suspect]
     Active Substance: ZOLEDRONIC ACID
     Dosage: UNK UKN, UNK
     Dates: start: 200808
  2. CISPLATIN. [Concomitant]
     Active Substance: CISPLATIN
     Dosage: UNK UKN, UNK
     Dates: start: 200808
  3. IRINOTECAN [Concomitant]
     Active Substance: IRINOTECAN
     Dosage: UNK UKN, UNK
     Dates: start: 200809
  4. IRINOTECAN [Concomitant]
     Active Substance: IRINOTECAN
     Dosage: UNK UKN, UNK
     Dates: start: 200811
  5. ZOMETA [Suspect]
     Active Substance: ZOLEDRONIC ACID
     Indication: SMALL CELL LUNG CANCER
     Dosage: UNK UKN, UNK
     Dates: start: 200807
  6. ZOMETA [Suspect]
     Active Substance: ZOLEDRONIC ACID
     Dosage: UNK UKN, UNK
     Dates: start: 200809
  7. DUROTEP [Concomitant]
     Active Substance: FENTANYL
     Dosage: UNK UKN, UNK
  8. ZOMETA [Suspect]
     Active Substance: ZOLEDRONIC ACID
     Indication: METASTASES TO BONE
     Dosage: UNK UKN, UNK
     Dates: start: 20080617
  9. CISPLATIN. [Concomitant]
     Active Substance: CISPLATIN
     Dosage: UNK UKN, UNK
     Dates: start: 200807
  10. IRINOTECAN [Concomitant]
     Active Substance: IRINOTECAN
     Dates: start: 20080617
  11. IRINOTECAN [Concomitant]
     Active Substance: IRINOTECAN
     Dosage: UNK UKN, UNK
     Dates: start: 200808
  12. KETALAR [Concomitant]
     Active Substance: KETAMINE HYDROCHLORIDE
     Dosage: UNK UKN, UNK
  13. CISPLATIN. [Concomitant]
     Active Substance: CISPLATIN
     Dosage: UNK UKN, UNK
     Dates: start: 200809
  14. CISPLATIN. [Concomitant]
     Active Substance: CISPLATIN
     Dosage: UNK UKN, UNK
     Dates: start: 200810
  15. CISPLATIN. [Concomitant]
     Active Substance: CISPLATIN
     Dosage: UNK UKN, UNK
     Dates: start: 200811
  16. IRINOTECAN [Concomitant]
     Active Substance: IRINOTECAN
     Dosage: UNK UKN, UNK
     Dates: start: 200807
  17. ZOMETA [Suspect]
     Active Substance: ZOLEDRONIC ACID
     Dosage: UNK UKN, UNK
     Dates: start: 200810
  18. LOXONIN [Concomitant]
     Active Substance: LOXOPROFEN SODIUM
     Dosage: UNK UKN, UNK
  19. CISPLATIN. [Concomitant]
     Active Substance: CISPLATIN
     Dosage: UNK UKN, UNK
     Dates: start: 20080617
  20. ZOMETA [Suspect]
     Active Substance: ZOLEDRONIC ACID
     Dosage: UNK UKN, UNK
     Dates: start: 200811
  21. IRINOTECAN [Concomitant]
     Active Substance: IRINOTECAN
     Dosage: UNK UKN, UNK
     Dates: start: 200810

REACTIONS (1)
  - Death [Fatal]

NARRATIVE: CASE EVENT DATE: 20090912
